FAERS Safety Report 21071517 (Version 1)
Quarter: 2022Q3

REPORT INFORMATION
  Report Type: Spontaneous
  Country: US (occurrence: US)
  Receive Date: 20220712
  Receipt Date: 20220712
  Transmission Date: 20221027
  Serious: Yes (Hospitalization, Other)
  Sender: FDA-Public Use
  Company Number: US-ALLERGAN-2222049US

PATIENT
  Sex: Female
  Weight: 125 kg

DRUGS (5)
  1. BOTOX COSMETIC [Suspect]
     Active Substance: ONABOTULINUMTOXINA
     Indication: Product used for unknown indication
     Dosage: UNK UNK, SINGLE
     Route: 030
     Dates: start: 2018, end: 2018
  2. BOTOX COSMETIC [Suspect]
     Active Substance: ONABOTULINUMTOXINA
     Dosage: UNK, SINGLE
     Route: 030
     Dates: start: 2016, end: 2016
  3. ZYRTEC [Concomitant]
     Active Substance: CETIRIZINE HYDROCHLORIDE
     Indication: Seasonal allergy
     Dosage: UNK
  4. Biestrogen [Concomitant]
     Indication: Hot flush
     Dosage: UNK
  5. MEDROXYPROGESTERONE [Concomitant]
     Active Substance: MEDROXYPROGESTERONE
     Indication: Prophylaxis
     Dosage: UNK
     Route: 048

REACTIONS (12)
  - Small intestinal perforation [Recovered/Resolved]
  - Abscess intestinal [Recovered/Resolved]
  - Diverticulitis [Recovered/Resolved]
  - Sepsis [Recovered/Resolved]
  - Renal failure [Recovered/Resolved]
  - Constipation [Recovered/Resolved]
  - Ovarian cyst [Recovered/Resolved]
  - Swelling [Recovered/Resolved]
  - Peripheral swelling [Recovered/Resolved]
  - Induration [Recovered/Resolved]
  - Migraine [Recovered/Resolved]
  - Abdominal pain [Recovered/Resolved]

NARRATIVE: CASE EVENT DATE: 20160101
